FAERS Safety Report 9924290 (Version 1)
Quarter: 2014Q1

REPORT INFORMATION
  Report Type: Report from Study
  Country: US (occurrence: US)
  Receive Date: 20140226
  Receipt Date: 20140226
  Transmission Date: 20141002
  Serious: Yes (Other)
  Sender: FDA-Public Use
  Company Number: US-ROCHE-1351226

PATIENT
  Sex: Female

DRUGS (6)
  1. AVASTIN [Suspect]
     Indication: CYSTOID MACULAR OEDEMA
     Route: 050
  2. AVASTIN [Suspect]
     Indication: VENOUS OCCLUSION
  3. XIBROM [Concomitant]
     Dosage: BID OS
     Route: 065
  4. LOTEMAX [Concomitant]
     Dosage: OS
     Route: 065
  5. CYMBALTA [Concomitant]
  6. BETADINE [Concomitant]

REACTIONS (5)
  - Eye discharge [Unknown]
  - Vitreous detachment [Unknown]
  - Vision blurred [Unknown]
  - Cataract nuclear [Unknown]
  - Off label use [Unknown]
